FAERS Safety Report 10683346 (Version 4)
Quarter: 2015Q1

REPORT INFORMATION
  Report Type: Spontaneous
  Country: JP (occurrence: JP)
  Receive Date: 20141230
  Receipt Date: 20150324
  Transmission Date: 20150720
  Serious: Yes (Hospitalization, Other)
  Sender: FDA-Public Use
  Company Number: JP-GLAXOSMITHKLINE-JP2014JPN042749

PATIENT
  Age: 68 Year
  Sex: Female
  Weight: 60 kg

DRUGS (10)
  1. HALCION [Concomitant]
     Active Substance: TRIAZOLAM
     Dosage: 0.25 MG, PRN
  2. SOLANAX [Concomitant]
     Active Substance: ALPRAZOLAM
     Dosage: 0.4 MG, PRN
  3. LAMICTAL [Suspect]
     Active Substance: LAMOTRIGINE
     Indication: AFFECT LABILITY
     Dosage: 25 MG, QD
     Route: 048
     Dates: start: 20141126, end: 20141209
  4. ABILIFY [Concomitant]
     Active Substance: ARIPIPRAZOLE
     Dosage: 6 MG, 1D
     Dates: start: 20141210, end: 20141216
  5. ZYPREXA [Suspect]
     Active Substance: OLANZAPINE
     Dosage: 2.5 MG, 1D
     Route: 065
     Dates: start: 20141217, end: 20141226
  6. LAMICTAL [Suspect]
     Active Substance: LAMOTRIGINE
     Dosage: 25 MG, BID
     Route: 048
     Dates: start: 20141210, end: 20141226
  7. GASMOTIN [Concomitant]
     Active Substance: MOSAPRIDE CITRATE
     Dosage: 10 MG, 1D
     Dates: end: 20141122
  8. MOSAPRIDE CITRATE HYDRATE [Concomitant]
     Active Substance: MOSAPRIDE CITRATE DIHYDRATE
     Dosage: UNK
     Dates: start: 20141212, end: 20141226
  9. LEXAPRO [Concomitant]
     Active Substance: ESCITALOPRAM OXALATE
     Dosage: 10 MG, 1D
     Dates: end: 20141226
  10. ABILIFY [Concomitant]
     Active Substance: ARIPIPRAZOLE
     Dosage: 3 MG, 1D
     Dates: start: 20141203, end: 20141209

REACTIONS (23)
  - Stevens-Johnson syndrome [Recovering/Resolving]
  - Oral mucosa erosion [Unknown]
  - Oral mucosal eruption [Recovering/Resolving]
  - Skin erosion [Unknown]
  - Skin degenerative disorder [Unknown]
  - Rash maculo-papular [Unknown]
  - Vulval disorder [Unknown]
  - Conjunctivitis [Unknown]
  - Epidermal necrosis [Unknown]
  - Erythema multiforme [Unknown]
  - Pyrexia [Unknown]
  - Eating disorder [Unknown]
  - Toxic skin eruption [Recovering/Resolving]
  - Eye discharge [Unknown]
  - Scab [Unknown]
  - Mouth swelling [Unknown]
  - Erythema [Unknown]
  - Lymphocytic infiltration [Unknown]
  - Ocular hyperaemia [Unknown]
  - Lip erosion [Unknown]
  - Purulent discharge [Unknown]
  - Gingival swelling [Unknown]
  - Eyelid erosion [Unknown]

NARRATIVE: CASE EVENT DATE: 20141225
